FAERS Safety Report 6187636-5 (Version None)
Quarter: 2009Q2

REPORT INFORMATION
  Report Type: 
  Country: None (occurrence: None)
  Receive Date: 20090511
  Receipt Date: 20090428
  Transmission Date: 20091009
  Serious: Yes (Other)
  Sender: FDA-Public Use
  Company Number: 2008AL007876

PATIENT
  Age: 76 Year
  Sex: Male

DRUGS (20)
  1. DIGOXIN [Suspect]
     Dosage: 0.25MG, PO
     Route: 048
     Dates: start: 20050101, end: 20090422
  2. MECLIZINE [Concomitant]
  3. AZITHROMYCIN [Concomitant]
  4. ADVICOR [Concomitant]
  5. METOPROLOL [Concomitant]
  6. GEMFIBROZIL [Concomitant]
  7. VIAGRA [Concomitant]
  8. LEVAQUIN [Concomitant]
  9. METHYLPRED [Concomitant]
  10. DOXYCYCL [Concomitant]
  11. PREDNISONE [Concomitant]
  12. SINGULAIR [Concomitant]
  13. TUSSIONEX [Concomitant]
  14. CLOBETASOL PROPIONATE [Concomitant]
  15. MELOXICAM [Concomitant]
  16. NASONES [Concomitant]
  17. ANTARA (MICRONIZED) [Concomitant]
  18. DIOVAN [Concomitant]
  19. DURATUSS [Concomitant]
  20. FLUTICASONE [Concomitant]

REACTIONS (1)
  - UNEVALUABLE EVENT [None]
